FAERS Safety Report 4777058-3 (Version None)
Quarter: 2005Q3

REPORT INFORMATION
  Report Type: 
  Country: None (occurrence: None)
  Receive Date: 20050921
  Receipt Date: 20050908
  Transmission Date: 20060218
  Serious: Yes (Hospitalization)
  Sender: FDA-Public Use
  Company Number: 2005BI002515

PATIENT
  Age: 29 Year
  Sex: Female
  Weight: 74.8435 kg

DRUGS (6)
  1. AVONEX [Suspect]
     Indication: MULTIPLE SCLEROSIS
     Dosage: 30 UG;QW;IM
     Route: 030
     Dates: start: 20030101
  2. RELPAX [Concomitant]
  3. DIAMOX [Concomitant]
  4. VICODIN [Concomitant]
  5. CYMBALTA [Concomitant]
  6. XANAX [Concomitant]

REACTIONS (10)
  - ABDOMINAL PAIN LOWER [None]
  - ABDOMINAL PAIN UPPER [None]
  - FALLOPIAN TUBE CYST [None]
  - GALLBLADDER DISORDER [None]
  - GASTROOESOPHAGEAL REFLUX DISEASE [None]
  - HYSTERECTOMY [None]
  - MIGRAINE [None]
  - NECK PAIN [None]
  - OVARIAN CYST [None]
  - PNEUMONIA [None]
